FAERS Safety Report 11149719 (Version 2)
Quarter: 2015Q2

REPORT INFORMATION
  Report Type: Spontaneous
  Country: US (occurrence: US)
  Receive Date: 20150529
  Receipt Date: 20150622
  Transmission Date: 20150821
  Serious: Yes (Hospitalization)
  Sender: FDA-Public Use
  Company Number: US-MALLINCKRODT-T201502612

PATIENT
  Age: 21 Year
  Sex: Male

DRUGS (2)
  1. GABLOFEN [Suspect]
     Active Substance: BACLOFEN
     Dosage: 150 MCG/DAY
  2. GABLOFEN [Suspect]
     Active Substance: BACLOFEN
     Indication: MUSCLE SPASTICITY
     Dosage: UNK
     Route: 037

REACTIONS (7)
  - Lethargy [Unknown]
  - Pain [Unknown]
  - Musculoskeletal stiffness [Unknown]
  - Respiratory disorder [Unknown]
  - Device issue [Unknown]
  - Muscle spasticity [Unknown]
  - Incision site infection [Unknown]

NARRATIVE: CASE EVENT DATE: 20150429
